FAERS Safety Report 19484947 (Version 1)
Quarter: 2021Q3

REPORT INFORMATION
  Report Type: Report from Study
  Country: None (occurrence: CA)
  Receive Date: 20210701
  Receipt Date: 20210701
  Transmission Date: 20211014
  Serious: Yes (Other)
  Sender: FDA-Public Use
  Company Number: CA-ABBVIE-21K-028-3916230-00

PATIENT
  Sex: Female

DRUGS (2)
  1. HUMIRA [Suspect]
     Active Substance: ADALIMUMAB
     Indication: CROHN^S DISEASE
     Route: 058
     Dates: start: 20100106, end: 20210218
  2. HUMIRA [Suspect]
     Active Substance: ADALIMUMAB
     Route: 058
     Dates: start: 2021

REACTIONS (4)
  - Post procedural fistula [Recovering/Resolving]
  - Infection [Recovered/Resolved]
  - Hysterectomy [Unknown]
  - Bladder perforation [Not Recovered/Not Resolved]

NARRATIVE: CASE EVENT DATE: 2021
